FAERS Safety Report 11620818 (Version 1)
Quarter: 2015Q4

REPORT INFORMATION
  Report Type: Spontaneous
  Country: GB (occurrence: GB)
  Receive Date: 20151012
  Receipt Date: 20151012
  Transmission Date: 20160304
  Serious: Yes (Hospitalization)
  Sender: FDA-Public Use
  Company Number: GB-JNJFOC-20151004773

PATIENT
  Age: 69 Year
  Sex: Female
  Weight: 60 kg

DRUGS (2)
  1. REOPRO [Suspect]
     Active Substance: ABCIXIMAB
     Indication: PERCUTANEOUS CORONARY INTERVENTION
     Route: 040
  2. REOPRO [Suspect]
     Active Substance: ABCIXIMAB
     Indication: ACUTE CORONARY SYNDROME
     Route: 040

REACTIONS (1)
  - Arterial injury [Unknown]
